FAERS Safety Report 17049288 (Version 1)
Quarter: 2019Q4

REPORT INFORMATION
  Report Type: Report from Study
  Country: CA (occurrence: CA)
  Receive Date: 20191119
  Receipt Date: 20191119
  Transmission Date: 20200122
  Serious: Yes (Death, Hospitalization, Other)
  Sender: FDA-Public Use
  Company Number: CA-PFIZER INC-2019496835

PATIENT
  Age: 67 Year
  Sex: Female

DRUGS (5)
  1. MORPHINE SULFATE. [Suspect]
     Active Substance: MORPHINE SULFATE
     Dosage: 15 MG, UNK
  2. ZELBORAF [Suspect]
     Active Substance: VEMURAFENIB
     Indication: METASTATIC MALIGNANT MELANOMA
     Dosage: 960 MG, 2X/DAY
     Route: 048
  3. COUMADIN [Concomitant]
     Active Substance: WARFARIN SODIUM
     Dosage: UNK
  4. TYLENOL [Concomitant]
     Active Substance: ACETAMINOPHEN
     Dosage: UNK
  5. MORPHINE SULFATE. [Suspect]
     Active Substance: MORPHINE SULFATE
     Dosage: 5.0 MG, UNK

REACTIONS (12)
  - Malignant neoplasm progression [Fatal]
  - Weight decreased [Fatal]
  - Drug ineffective [Fatal]
  - Dyspnoea [Fatal]
  - Insomnia [Fatal]
  - Constipation [Fatal]
  - Metastases to spine [Fatal]
  - Anxiety [Fatal]
  - Nausea [Fatal]
  - Pain [Fatal]
  - Rash pruritic [Fatal]
  - Pain in extremity [Fatal]
